FAERS Safety Report 25375166 (Version 1)
Quarter: 2025Q2

REPORT INFORMATION
  Report Type: Spontaneous
  Country: US (occurrence: US)
  Receive Date: 20250529
  Receipt Date: 20250529
  Transmission Date: 20250716
  Serious: Yes (Hospitalization)
  Sender: MERCK SHARP & DOHME LLC
  Company Number: US-009507513-2288847

PATIENT
  Age: 5 Year
  Sex: Female

DRUGS (4)
  1. POSACONAZOLE [Suspect]
     Active Substance: POSACONAZOLE
     Indication: Cutaneous mucormycosis
     Route: 048
  2. THIOGUANINE ANHYDROUS [Concomitant]
     Active Substance: THIOGUANINE ANHYDROUS
     Indication: Philadelphia chromosome positive
  3. AMPHOTERICIN B [Concomitant]
     Active Substance: AMPHOTERICIN B
     Indication: Cutaneous mucormycosis
     Route: 042
  4. IMATINIB [Suspect]
     Active Substance: IMATINIB
     Indication: B precursor type acute leukaemia
     Route: 065

REACTIONS (10)
  - Drug level increased [Unknown]
  - Electrocardiogram QT prolonged [Unknown]
  - Electrolyte imbalance [Unknown]
  - Hypomagnesaemia [Unknown]
  - Hypophosphataemia [Unknown]
  - Hypokalaemia [Unknown]
  - Product use in unapproved indication [Unknown]
  - Generalised oedema [Unknown]
  - Hypoalbuminaemia [Unknown]
  - Drug interaction [Unknown]
